FAERS Safety Report 15463366 (Version 2)
Quarter: 2018Q4

REPORT INFORMATION
  Report Type: Spontaneous
  Country: AT (occurrence: AT)
  Receive Date: 20181004
  Receipt Date: 20181209
  Transmission Date: 20190204
  Serious: Yes (Hospitalization)
  Sender: FDA-Public Use
  Company Number: AT-BIOGEN-2018BI00640230

PATIENT
  Age: 41 Year
  Sex: Female

DRUGS (1)
  1. TYSABRI [Suspect]
     Active Substance: NATALIZUMAB
     Indication: MULTIPLE SCLEROSIS
     Route: 042
     Dates: start: 201301, end: 20180813

REACTIONS (1)
  - Diabetic nephropathy [Recovered/Resolved]

NARRATIVE: CASE EVENT DATE: 2018
